FAERS Safety Report 8450043-6 (Version None)
Quarter: 2012Q2

REPORT INFORMATION
  Report Type: 
  Country: None (occurrence: None)
  Receive Date: 20120613
  Receipt Date: 20120530
  Transmission Date: 20120825
  Serious: Yes (Other)
  Sender: FDA-Public Use
  Company Number: 2012-2153

PATIENT
  Age: 40 Year
  Sex: Female
  Weight: 61.2 kg

DRUGS (4)
  1. UNSPECIFIED DERMAL FILLER (ALL OTHER THERAPEUTIC PRODUCTS) [Suspect]
     Indication: SKIN COSMETIC PROCEDURE
  2. UNSPECIFIED VITAMINS (VITAMINS NOS) [Concomitant]
  3. DYSPORT [Suspect]
     Indication: SKIN WRINKLING
     Dosage: EVERY SIX MONTHS
     Dates: start: 20060101
  4. SYNTHROID [Concomitant]

REACTIONS (5)
  - HYPERAESTHESIA [None]
  - CULTURE WOUND POSITIVE [None]
  - CORYNEBACTERIUM TEST POSITIVE [None]
  - SYNOVIAL CYST [None]
  - HAEMOPHILUS TEST POSITIVE [None]
